FAERS Safety Report 8831710 (Version 1)
Quarter: 2012Q4

REPORT INFORMATION
  Report Type: 
  Country: US (occurrence: US)
  Receive Date: 20121009
  Receipt Date: 20121009
  Transmission Date: 20130627
  Serious: No
  Sender: FDA-Public Use
  Company Number: US-009507513-1210USA003286

PATIENT

DRUGS (2)
  1. EMEND FOR INJECTION [Suspect]
     Indication: PROPHYLAXIS OF NAUSEA AND VOMITING
     Dosage: UNK
     Route: 042
     Dates: start: 20121005
  2. TAXOL [Concomitant]
     Dosage: UNK
     Dates: start: 20121005

REACTIONS (1)
  - Drug hypersensitivity [Unknown]
